FAERS Safety Report 11829304 (Version 1)
Quarter: 2015Q4

REPORT INFORMATION
  Report Type: Spontaneous
  Country: US (occurrence: US)
  Receive Date: 20151211
  Receipt Date: 20151211
  Transmission Date: 20160305
  Serious: No
  Sender: FDA-Public Use
  Company Number: US-BAUSCH-BL-2015-012661

PATIENT
  Age: 39 Year
  Sex: Female

DRUGS (4)
  1. XENAZINE [Suspect]
     Active Substance: TETRABENAZINE
     Dosage: ONE TABLET IN THE MORNING, HALF TABLET AT NOON, AND 1 TABLET AT NIGHT.
     Route: 048
     Dates: start: 20150429
  2. XENAZINE [Suspect]
     Active Substance: TETRABENAZINE
     Indication: HUNTINGTON^S DISEASE
     Route: 048
     Dates: start: 20150415
  3. XENAZINE [Suspect]
     Active Substance: TETRABENAZINE
     Route: 048
     Dates: start: 20150501
  4. XENAZINE [Suspect]
     Active Substance: TETRABENAZINE
     Dosage: HALF TABLET IN THE MORNING, HALF TABLET AT NOON, AND 1 TABLET AT NIGHT.
     Route: 048
     Dates: start: 20150422

REACTIONS (2)
  - Agitation [Not Recovered/Not Resolved]
  - Drug administration error [Unknown]

NARRATIVE: CASE EVENT DATE: 201504
